FAERS Safety Report 15473730 (Version 1)
Quarter: 2018Q4

REPORT INFORMATION
  Report Type: Report from Study
  Country: US (occurrence: US)
  Receive Date: 20181008
  Receipt Date: 20181008
  Transmission Date: 20190205
  Serious: Yes (Hospitalization)
  Sender: FDA-Public Use
  Company Number: US-EISAI MEDICAL RESEARCH-EC-2018-045892

PATIENT
  Age: 61 Year
  Sex: Male

DRUGS (1)
  1. LENVIMA [Suspect]
     Active Substance: LENVATINIB
     Indication: HEPATIC CANCER
     Route: 048
     Dates: end: 201809

REACTIONS (9)
  - Ascites [Recovered/Resolved]
  - Liver function test decreased [Unknown]
  - Blood albumin decreased [Unknown]
  - Asthenia [Not Recovered/Not Resolved]
  - Blood bilirubin increased [Unknown]
  - Hyponatraemia [Unknown]
  - Fatigue [Unknown]
  - Dysphonia [Unknown]
  - Abdominal pain upper [Not Recovered/Not Resolved]

NARRATIVE: CASE EVENT DATE: 2018
